FAERS Safety Report 12420727 (Version 1)
Quarter: 2016Q2

REPORT INFORMATION
  Report Type: Spontaneous
  Country: US (occurrence: US)
  Receive Date: 20160531
  Receipt Date: 20160531
  Transmission Date: 20160815
  Serious: Yes (Hospitalization)
  Sender: FDA-Public Use
  Company Number: US-SMITH AND NEPHEW, INC-2016SMT00459

PATIENT
  Age: 30 Year
  Sex: Male
  Weight: 86.17 kg

DRUGS (6)
  1. GABAPENTIN. [Concomitant]
     Active Substance: GABAPENTIN
     Dosage: 300 MG, 3X/DAY
  2. NOVOLIN [Concomitant]
     Active Substance: INSULIN HUMAN
     Dosage: 5 U, 1X/DAY
  3. NOVOLIN [Concomitant]
     Active Substance: INSULIN HUMAN
     Dosage: 15 U, 1X/DAY
  4. REGRANEX [Suspect]
     Active Substance: BECAPLERMIN
     Indication: DIABETIC FOOT
     Dosage: UNK, 1X/DAY
     Route: 061
     Dates: start: 201604, end: 20160514
  5. BENAZEPRIL HYDROCHLORIDE. [Concomitant]
     Active Substance: BENAZEPRIL HYDROCHLORIDE
     Dosage: 30 MG, 1X/DAY
  6. NIFEDIPINE. [Concomitant]
     Active Substance: NIFEDIPINE
     Dosage: 10 MG, 1X/DAY

REACTIONS (3)
  - Drug ineffective [Unknown]
  - Blood potassium increased [Unknown]
  - Retinal detachment [Unknown]

NARRATIVE: CASE EVENT DATE: 2016
